FAERS Safety Report 11824259 (Version 1)
Quarter: 2015Q4

REPORT INFORMATION
  Report Type: Spontaneous
  Country: GB (occurrence: GB)
  Receive Date: 20151210
  Receipt Date: 20151210
  Transmission Date: 20160305
  Serious: Yes (Life-Threatening)
  Sender: FDA-Public Use
  Company Number: GB-FRESENIUS KABI-FK201506431

PATIENT
  Age: 54 Year
  Sex: Female
  Weight: 54 kg

DRUGS (11)
  1. CEFUROXIME (MANUFACTURER UNKNOWN) [Suspect]
     Active Substance: CEFUROXIME
     Indication: ANTIBIOTIC PROPHYLAXIS
     Route: 042
  2. ALFACALCIDOL [Concomitant]
     Active Substance: ALFACALCIDOL
  3. NOVORAPID [Concomitant]
     Active Substance: INSULIN ASPART
  4. PARACETAMOL [Concomitant]
     Active Substance: ACETAMINOPHEN
  5. ATRACURIUM [Suspect]
     Active Substance: ATRACURIUM
     Indication: ENDOTRACHEAL INTUBATION
     Route: 042
  6. ASPIRIN. [Concomitant]
     Active Substance: ASPIRIN
  7. FENTANYL. [Concomitant]
     Active Substance: FENTANYL
  8. STATIN [Concomitant]
     Active Substance: UNSPECIFIED INGREDIENT
  9. GABAPENTIN. [Concomitant]
     Active Substance: GABAPENTIN
  10. DOCUSATE [Concomitant]
     Active Substance: DOCUSATE
  11. LEVEMIR [Concomitant]
     Active Substance: INSULIN DETEMIR

REACTIONS (1)
  - Anaphylactic reaction [Recovered/Resolved]

NARRATIVE: CASE EVENT DATE: 20151123
